FAERS Safety Report 5576340-X (Version None)
Quarter: 2007Q4

REPORT INFORMATION
  Report Type: 
  Country: None (occurrence: None)
  Receive Date: 20071228
  Receipt Date: 20071219
  Transmission Date: 20080405
  Serious: Yes (Hospitalization)
  Sender: FDA-Public Use
  Company Number: PL-ROCHE-537816

PATIENT
  Age: 55 Year
  Sex: Female

DRUGS (7)
  1. PEGYLATED INTERFERON NOS [Suspect]
     Dosage: THERAPY WAS STOPPED FOR 2 WEEKS.
     Route: 065
     Dates: start: 20030101
  2. RIBAVIRIN [Suspect]
     Route: 065
     Dates: start: 20030101
  3. RIBAVIRIN [Suspect]
     Route: 065
     Dates: start: 20030101, end: 20030101
  4. RIBAVIRIN [Suspect]
     Route: 065
     Dates: start: 19990101
  5. INTERFERON NOS [Suspect]
     Indication: HEPATITIS C
     Route: 065
     Dates: start: 19960101
  6. INTERFERON NOS [Suspect]
     Dosage: AFTER A HALF-YEAR BREAK.
     Route: 065
  7. INTERFERON NOS [Suspect]
     Route: 065
     Dates: start: 19990101

REACTIONS (3)
  - ANAEMIA [None]
  - ATRIOVENTRICULAR BLOCK [None]
  - DRUG INEFFECTIVE [None]
